FAERS Safety Report 7478861-1 (Version None)
Quarter: 2011Q2

REPORT INFORMATION
  Report Type: 
  Country: None (occurrence: None)
  Receive Date: 20110513
  Receipt Date: 20110506
  Transmission Date: 20111010
  Serious: Yes (Other)
  Sender: FDA-Public Use
  Company Number: CA-JNJFOC-20110504039

PATIENT
  Age: 48 Year
  Sex: Male
  Weight: 65.77 kg

DRUGS (2)
  1. TYLENOL COLD PLUS MUCOUS RELIEF [Suspect]
     Indication: INCREASED UPPER AIRWAY SECRETION
     Dosage: TAKEN TWICE
     Route: 048
  2. TYLENOL COLD PLUS MUCOUS RELIEF [Suspect]
     Indication: NASOPHARYNGITIS
     Dosage: TAKEN TWICE
     Route: 048

REACTIONS (2)
  - DYSPNOEA [None]
  - WHEEZING [None]
